FAERS Safety Report 19662164 (Version 3)
Quarter: 2023Q2

REPORT INFORMATION
  Report Type: Report from Study
  Country: AU (occurrence: None)
  Receive Date: 20210805
  Receipt Date: 20230628
  Transmission Date: 20230721
  Serious: Yes (Hospitalization)
  Sender: FDA-Public Use
  Company Number: AU-ROCHE-2881653

PATIENT
  Age: 58 Year
  Sex: Female

DRUGS (14)
  1. ATEZOLIZUMAB [Suspect]
     Active Substance: ATEZOLIZUMAB
     Indication: Ovarian cancer
     Route: 041
     Dates: start: 20210715, end: 20210715
  2. BEVACIZUMAB [Suspect]
     Active Substance: BEVACIZUMAB
     Indication: Ovarian cancer
     Dosage: DATE OF MOST RECENT DOSE BEVACIZUMAB PRIOR TO SERIOUS ADVERSE EVENT ONSET ON 15/JUL/2021
     Route: 042
     Dates: start: 20210616, end: 20210715
  3. COBIMETINIB [Suspect]
     Active Substance: COBIMETINIB
     Indication: Ovarian cancer
     Dosage: DATE OF MOST TREATMENT OF COBIMETINIB  RECEIVED PRIOR TO ADVERSE EVENT ONSET: ON 15/JUL/2021?SWALLOW
     Route: 048
     Dates: start: 20210616
  4. MAGNESIUM ASPARTATE [Concomitant]
     Active Substance: MAGNESIUM ASPARTATE
     Route: 048
     Dates: start: 20210629
  5. METOCLOPRAMIDE [Concomitant]
     Active Substance: METOCLOPRAMIDE
     Dosage: WHEN REQUIRE FOR NAUSEA OR VOMMITTING
     Route: 048
     Dates: start: 20210317
  6. BENOXINATE [Concomitant]
     Active Substance: BENOXINATE
     Dosage: 1 DROP EACH EYE ONCE, INSTIL 1 DROP INTO EYE FOR ANAESTHESIA
     Route: 004
     Dates: start: 20210611
  7. BENOXINATE [Concomitant]
     Active Substance: BENOXINATE
     Dosage: 1 DROP EACH EYE ONCE, INSTIL 1 DROP INTO EYE FOR ANAESTHESIA
     Dates: start: 20210713
  8. OXYCODONE HYDROCHLORIDE [Concomitant]
     Active Substance: OXYCODONE HYDROCHLORIDE
     Route: 048
     Dates: start: 20210615
  9. OXYCONTIN [Concomitant]
     Active Substance: OXYCODONE HYDROCHLORIDE
     Dosage: MODIFIED RELEASE TABLET
     Route: 048
     Dates: start: 20210714
  10. PREGABALIN [Concomitant]
     Active Substance: PREGABALIN
     Route: 048
     Dates: start: 20210714
  11. DOCUSATE SODIUM\SENNOSIDES A AND B [Concomitant]
     Active Substance: DOCUSATE SODIUM\SENNOSIDES A AND B
     Dosage: WHEN REQUIRED FOR CONSTIPATION
     Route: 048
     Dates: start: 20200908
  12. SUMATRIPTAN [Concomitant]
     Active Substance: SUMATRIPTAN
     Dosage: WHEN REQUIRE FOR MIGRANE
     Route: 048
  13. TROPICAMIDE [Concomitant]
     Active Substance: TROPICAMIDE
     Dosage: 1 DROP EACH EYE ONCE REFRIGERATE DO NOT FREEZE PROTECT FROM LIGHT
     Dates: start: 20210611
  14. TROPICAMIDE [Concomitant]
     Active Substance: TROPICAMIDE
     Dosage: 1 DROP EACH EYE ONCE REFRIGERATE DO NOT FREEZE PROTECT FROM LIGHT
     Dates: start: 20210713

REACTIONS (1)
  - Pyrexia [Recovered/Resolved]

NARRATIVE: CASE EVENT DATE: 20210729
